FAERS Safety Report 4907249-X (Version None)
Quarter: 2006Q1

REPORT INFORMATION
  Report Type: 
  Country: None (occurrence: None)
  Receive Date: 20060207
  Receipt Date: 20060125
  Transmission Date: 20060701
  Serious: Yes (Hospitalization)
  Sender: FDA-Public Use
  Company Number: US-2006-001963

PATIENT
  Age: 22 Year
  Sex: Female

DRUGS (2)
  1. MIRENA [Suspect]
     Dosage: 20 UG/DAY, CONT, INTRA-UTERINE
     Route: 015
     Dates: start: 20051107
  2. DOXYCYCLINE [Concomitant]

REACTIONS (9)
  - ADNEXA UTERI MASS [None]
  - DEVICE FAILURE [None]
  - MALAISE [None]
  - OVARIAN CYST [None]
  - PELVIC ABSCESS [None]
  - PELVIC INFLAMMATORY DISEASE [None]
  - SEPSIS [None]
  - TREATMENT NONCOMPLIANCE [None]
  - TUBO-OVARIAN ABSCESS [None]
